FAERS Safety Report 8130945-0 (Version None)
Quarter: 2012Q1

REPORT INFORMATION
  Report Type: 
  Country: None (occurrence: None)
  Receive Date: 20120213
  Receipt Date: 20120206
  Transmission Date: 20120608
  Serious: No
  Sender: FDA-Public Use
  Company Number: US-PFIZER INC-2012033077

PATIENT
  Sex: Female
  Weight: 67.12 kg

DRUGS (2)
  1. KEFLEX [Interacting]
     Indication: GASTROOESOPHAGEAL REFLUX DISEASE
     Dosage: 500 MG, EVERY SIX HOURS
     Dates: start: 20120204, end: 20120205
  2. PROTONIX [Suspect]
     Indication: GASTROOESOPHAGEAL REFLUX DISEASE
     Dosage: 40 MG, DAILY
     Dates: start: 20120201

REACTIONS (2)
  - DYSPEPSIA [None]
  - DRUG INTERACTION [None]
